FAERS Safety Report 26065392 (Version 1)
Quarter: 2025Q4

REPORT INFORMATION
  Report Type: Spontaneous
  Country: US (occurrence: None)
  Receive Date: 20251119
  Receipt Date: 20251119
  Transmission Date: 20260118
  Serious: Yes (Other)
  Sender: FDA-CTU
  Company Number: None

PATIENT
  Age: 39 Year
  Sex: Female
  Weight: 78.75 kg

DRUGS (3)
  1. ESTRADIOL [Suspect]
     Active Substance: ESTRADIOL
     Indication: Menopausal symptoms
     Dosage: OTHER QUANTITY : 30 TABLET(S);?FREQUENCY : DAILY;?
     Route: 048
     Dates: start: 20251105, end: 20251118
  2. ROPINIROLE [Suspect]
     Active Substance: ROPINIROLE
  3. Omeprazole 20mg QD [Concomitant]

REACTIONS (6)
  - Loss of consciousness [None]
  - Nausea [None]
  - Vomiting [None]
  - Product use issue [None]
  - Drug interaction [None]
  - Product communication issue [None]

NARRATIVE: CASE EVENT DATE: 20251118
